FAERS Safety Report 13010784 (Version 3)
Quarter: 2017Q1

REPORT INFORMATION
  Report Type: Spontaneous
  Country: ES (occurrence: ES)
  Receive Date: 20161208
  Receipt Date: 20170118
  Transmission Date: 20170428
  Serious: Yes (Hospitalization, Other)
  Sender: FDA-Public Use
  Company Number: ES-PFIZER INC-2016569556

PATIENT
  Age: 70 Year
  Sex: Male
  Weight: 87 kg

DRUGS (3)
  1. OXIMUM [Suspect]
     Active Substance: SILDENAFIL CITRATE
     Indication: PROSTATECTOMY
     Dosage: ONE BEFORE THE SEXUAL INTERCOURSE
     Route: 048
     Dates: start: 20161117, end: 20161123
  2. TOVIAZ [Suspect]
     Active Substance: FESOTERODINE FUMARATE
     Indication: PROSTATECTOMY
     Dosage: 8 MG, 1X/DAY (0-0-1)
     Route: 048
     Dates: start: 20161117, end: 20161123
  3. CHIROFLU [Suspect]
     Active Substance: INFLUENZA VIRUS VACCINE
     Indication: IMMUNISATION
     Dosage: 1 DF, SINGLE
     Route: 030
     Dates: start: 20161117, end: 20161117

REACTIONS (11)
  - Staphylococcal parotitis [Unknown]
  - Influenza A virus test positive [Unknown]
  - Incontinence [Unknown]
  - Product use issue [Recovered/Resolved]
  - Dementia [Recovering/Resolving]
  - Restlessness [Unknown]
  - Agitation [Unknown]
  - Insomnia [Unknown]
  - Encephalopathy [Recovering/Resolving]
  - Disorientation [Unknown]
  - Malaise [Unknown]

NARRATIVE: CASE EVENT DATE: 201611
